FAERS Safety Report 8268546-6 (Version None)
Quarter: 2012Q2

REPORT INFORMATION
  Report Type: 
  Country: None (occurrence: None)
  Receive Date: 20120409
  Receipt Date: 20120329
  Transmission Date: 20120825
  Serious: Yes (Hospitalization)
  Sender: FDA-Public Use
  Company Number: FR-GLAXOSMITHKLINE-B0792577A

PATIENT
  Age: 88 Year
  Sex: Male
  Weight: 75 kg

DRUGS (4)
  1. LASIX [Concomitant]
     Indication: CARDIAC FAILURE
     Route: 048
  2. DIGOXIN [Concomitant]
     Indication: CARDIAC FAILURE
     Route: 048
  3. ARIXTRA [Suspect]
     Indication: DEEP VEIN THROMBOSIS
     Dosage: 7.5MG PER DAY
     Route: 058
     Dates: start: 20120301, end: 20120301
  4. NITRODERM [Concomitant]
     Indication: CARDIAC FAILURE
     Route: 062

REACTIONS (3)
  - HAEMATOMA [None]
  - ANAEMIA [None]
  - INCORRECT DRUG ADMINISTRATION DURATION [None]
